FAERS Safety Report 10521257 (Version 1)
Quarter: 2014Q4

REPORT INFORMATION
  Report Type: Report from Study
  Country: NL (occurrence: NL)
  Receive Date: 20141016
  Receipt Date: 20141016
  Transmission Date: 20150528
  Serious: Yes (Other)
  Sender: FDA-Public Use
  Company Number: NL-AMGEN-NLDSL2011071904

PATIENT
  Age: 83 Year
  Sex: Male

DRUGS (2)
  1. ASCAL                              /00002702/ [Concomitant]
     Active Substance: ASPIRIN CALCIUM
  2. ARANESP [Suspect]
     Active Substance: DARBEPOETIN ALFA
     Indication: PRODUCT USED FOR UNKNOWN INDICATION
     Dosage: 80 UNK, Q2WK
     Route: 065

REACTIONS (4)
  - Haemorrhage urinary tract [Unknown]
  - Haemoglobin abnormal [Unknown]
  - Vomiting [Unknown]
  - Prostatic specific antigen increased [Unknown]
